FAERS Safety Report 19439211 (Version 2)
Quarter: 2021Q3

REPORT INFORMATION
  Report Type: Spontaneous
  Country: GB (occurrence: GB)
  Receive Date: 20210619
  Receipt Date: 20210826
  Transmission Date: 20211014
  Serious: Yes (Death, Hospitalization)
  Sender: FDA-Public Use
  Company Number: GB-ADVANZ PHARMA-202106004292

PATIENT

DRUGS (6)
  1. PREDNESOL 5MG TABLETS,SOLUBLE PREDNISOLONE 5MG TABLETS [Suspect]
     Active Substance: PREDNISOLONE SODIUM PHOSPHATE
     Indication: MYALGIA
     Dosage: 15 MG, 15 MG IN SEP?2020, DOWN TO 7MG BY FEB?2021; ;
     Route: 048
     Dates: start: 202009
  2. PREDNESOL 5MG TABLETS,SOLUBLE PREDNISOLONE 5MG TABLETS [Suspect]
     Active Substance: PREDNISOLONE SODIUM PHOSPHATE
     Dosage: 7 MG, 15 MG IN SEP?2020, DOWN TO 7MG BY FEB?2021; ;
     Route: 048
     Dates: start: 202102
  3. OMEPRAZOLE. [Concomitant]
     Active Substance: OMEPRAZOLE
     Dosage: 20 MG, QD
  4. EPADERM [Concomitant]
     Active Substance: MINERAL OIL\PETROLATUM\WAX, EMULSIFYING
     Dosage: UNK, PRN
  5. ALENDRONIC ACID [Concomitant]
     Active Substance: ALENDRONIC ACID
     Dosage: STRENGTH: 70MG OD
  6. CARBOMER [Concomitant]
     Active Substance: CARBOMER
     Dosage: STRENGTH: 0.2%

REACTIONS (6)
  - Conversion disorder [Fatal]
  - Head discomfort [Fatal]
  - Agitation [Fatal]
  - Confusional state [Fatal]
  - General physical health deterioration [Fatal]
  - Memory impairment [Fatal]

NARRATIVE: CASE EVENT DATE: 20210228
